FAERS Safety Report 7749921-2 (Version None)
Quarter: 2011Q3

REPORT INFORMATION
  Report Type: 
  Country: None (occurrence: None)
  Receive Date: 20110914
  Receipt Date: 20110903
  Transmission Date: 20111222
  Serious: Yes (Hospitalization)
  Sender: FDA-Public Use
  Company Number: US-US-EMD SERONO, INC.-7081409

PATIENT
  Sex: Female

DRUGS (6)
  1. REBIF [Suspect]
     Route: 058
  2. TWELVE OTHER UNSPECIFIED MEDICATIONS [Concomitant]
  3. REBIF [Suspect]
     Indication: MULTIPLE SCLEROSIS
     Route: 058
  4. REBIF [Suspect]
     Route: 058
     Dates: start: 20110902
  5. MOTRIN [Concomitant]
     Indication: PREMEDICATION
  6. UNSPECIFIED ANTI-NAUSEA MEDICATION [Concomitant]
     Indication: NAUSEA

REACTIONS (4)
  - MULTIPLE SCLEROSIS RELAPSE [None]
  - STAPHYLOCOCCAL INFECTION [None]
  - INJECTION SITE PAIN [None]
  - FEELING ABNORMAL [None]
